FAERS Safety Report 17013204 (Version 2)
Quarter: 2019Q4

REPORT INFORMATION
  Report Type: Report from Study
  Country: CO (occurrence: CO)
  Receive Date: 20191110
  Receipt Date: 20191127
  Transmission Date: 20200122
  Serious: Yes (Other)
  Sender: FDA-Public Use
  Company Number: PHHY2019CO147076

PATIENT
  Age: 37 Year
  Sex: Female

DRUGS (1)
  1. TYKERB [Suspect]
     Active Substance: LAPATINIB DITOSYLATE
     Indication: BREAST CANCER
     Dosage: 1250 MG, QD
     Route: 048
     Dates: start: 20181114

REACTIONS (4)
  - Breast cancer recurrent [Unknown]
  - Seizure [Unknown]
  - Headache [Unknown]
  - Vertigo [Unknown]

NARRATIVE: CASE EVENT DATE: 201906
